FAERS Safety Report 8338035-9 (Version None)
Quarter: 2012Q2

REPORT INFORMATION
  Report Type: 
  Country: None (occurrence: None)
  Receive Date: 20120504
  Receipt Date: 20120426
  Transmission Date: 20120825
  Serious: Yes (Hospitalization, Other)
  Sender: FDA-Public Use
  Company Number: US-JNJFOC-20100807815

PATIENT
  Sex: Male

DRUGS (2)
  1. LEVAQUIN [Suspect]
     Indication: PNEUMONIA
     Route: 048
     Dates: start: 20080101, end: 20080131
  2. LEVAQUIN [Suspect]
     Indication: BRONCHITIS
     Route: 065

REACTIONS (4)
  - FALL [None]
  - MYALGIA [None]
  - DEPRESSION [None]
  - TENDON RUPTURE [None]
